FAERS Safety Report 12234832 (Version 1)
Quarter: 2016Q2

REPORT INFORMATION
  Report Type: Spontaneous
  Country: US (occurrence: US)
  Receive Date: 20160404
  Receipt Date: 20160404
  Transmission Date: 20160815
  Serious: No
  Sender: FDA-Public Use
  Company Number: US-TEVA-562967USA

PATIENT
  Sex: Male

DRUGS (2)
  1. WARFARIN [Suspect]
     Active Substance: WARFARIN
  2. NITROUS OXIDE. [Interacting]
     Active Substance: NITROUS OXIDE
     Route: 065

REACTIONS (2)
  - Chest discomfort [Unknown]
  - Drug interaction [Unknown]
